FAERS Safety Report 23994151 (Version 1)
Quarter: 2024Q2

REPORT INFORMATION
  Report Type: Spontaneous
  Country: US (occurrence: None)
  Receive Date: 20240618
  Receipt Date: 20240618
  Transmission Date: 20240716
  Serious: Yes (Hospitalization, Other)
  Sender: FDA-Public Use
  Company Number: None

PATIENT
  Age: 39 Year
  Sex: Male
  Weight: 63 kg

DRUGS (1)
  1. EMGALITY [Suspect]
     Active Substance: GALCANEZUMAB-GNLM
     Indication: Headache
     Dates: start: 20240611, end: 20240611

REACTIONS (6)
  - Nausea [None]
  - Vomiting [None]
  - Diarrhoea [None]
  - Abdominal pain [None]
  - Dehydration [None]
  - Economic problem [None]

NARRATIVE: CASE EVENT DATE: 20240611
